FAERS Safety Report 7387928-8 (Version None)
Quarter: 2011Q2

REPORT INFORMATION
  Report Type: 
  Country: None (occurrence: None)
  Receive Date: 20110401
  Receipt Date: 20110322
  Transmission Date: 20111010
  Serious: Yes (Hospitalization)
  Sender: FDA-Public Use
  Company Number: US-BIOGENIDEC-2011BI011156

PATIENT
  Age: 50 Year
  Sex: Female

DRUGS (3)
  1. BACLOFEN [Concomitant]
     Route: 048
  2. TYSABRI [Suspect]
     Route: 042
     Dates: start: 20061012, end: 20100106
  3. TYSABRI [Suspect]
     Indication: MULTIPLE SCLEROSIS
     Route: 042
     Dates: start: 20100921, end: 20101230

REACTIONS (2)
  - MULTIPLE SCLEROSIS RELAPSE [None]
  - MEDICAL DEVICE COMPLICATION [None]
